FAERS Safety Report 7944740-6 (Version None)
Quarter: 2011Q4

REPORT INFORMATION
  Report Type: 
  Country: None (occurrence: None)
  Receive Date: 20111114
  Receipt Date: 20110920
  Transmission Date: 20120403
  Serious: No
  Sender: FDA-Public Use
  Company Number: 1000006246

PATIENT
  Age: 58 Year
  Sex: Female

DRUGS (9)
  1. BACLOFEN [Concomitant]
  2. DILAUDID [Concomitant]
  3. CALCIUM [Concomitant]
  4. STOOL SOFTNER (NOS) [Concomitant]
  5. CLONIDINE [Concomitant]
  6. STOMACH ACID REDUCER (NOS) [Concomitant]
  7. COUMADIN [Concomitant]
  8. SAVELLA [Suspect]
     Indication: FIBROMYALGIA
     Dosage: 12.5 MG (12.5 MG, 1 IN 1 D), ORAL; 25 MG (12.5 MG, 2 IN 1 CYCLICAL), ORAL; 50 MG (25 MG, 2 IN 1 D),
     Route: 048
     Dates: start: 20090508, end: 20090508
  9. MARCAINE [Concomitant]

REACTIONS (1)
  - HEADACHE [None]
